FAERS Safety Report 6726512-3 (Version None)
Quarter: 2010Q2

REPORT INFORMATION
  Report Type: 
  Country: None (occurrence: None)
  Receive Date: 20100514
  Receipt Date: 20100402
  Transmission Date: 20101027
  Serious: Yes (Death)
  Sender: FDA-Public Use
  Company Number: US-BAXTER-2009BH018000

PATIENT
  Age: 79 Year
  Sex: Male
  Weight: 106 kg

DRUGS (23)
  1. HEPARIN SODIUM INJECTION [Suspect]
     Indication: CHOLECYSTECTOMY
     Route: 042
     Dates: start: 20071031
  2. HEPARIN SODIUM INJECTION [Suspect]
     Indication: DRUG USE FOR UNKNOWN INDICATION
     Route: 042
     Dates: start: 20071112, end: 20071112
  3. HEPARIN SODIUM INJECTION [Suspect]
     Route: 042
     Dates: start: 20071113, end: 20071113
  4. WARFARIN SODIUM [Suspect]
     Indication: ANTICOAGULANT THERAPY
     Route: 048
     Dates: start: 20071031
  5. WARFARIN SODIUM [Suspect]
     Route: 048
     Dates: end: 20071030
  6. WARFARIN SODIUM [Suspect]
     Route: 048
     Dates: end: 20071030
  7. LOVENOX [Suspect]
     Indication: DRUG USE FOR UNKNOWN INDICATION
     Route: 058
     Dates: start: 20071031, end: 20071031
  8. LOVENOX [Suspect]
     Route: 058
     Dates: start: 20071031, end: 20071101
  9. LOVENOX [Suspect]
     Route: 058
     Dates: start: 20071101, end: 20071105
  10. LASIX [Concomitant]
     Indication: DRUG USE FOR UNKNOWN INDICATION
     Route: 048
  11. POTASSIUM [Concomitant]
     Indication: DRUG USE FOR UNKNOWN INDICATION
     Route: 065
  12. PLAVIX [Concomitant]
     Indication: DRUG USE FOR UNKNOWN INDICATION
     Route: 048
  13. ELAVIL [Concomitant]
     Indication: DRUG USE FOR UNKNOWN INDICATION
     Route: 048
  14. HYTRIN [Concomitant]
     Indication: DRUG USE FOR UNKNOWN INDICATION
     Route: 065
  15. ALLOPURINOL [Concomitant]
     Indication: DRUG USE FOR UNKNOWN INDICATION
     Route: 048
  16. COLCHICINE [Concomitant]
     Indication: DRUG USE FOR UNKNOWN INDICATION
     Route: 065
  17. LEVAQUIN [Concomitant]
     Indication: DRUG USE FOR UNKNOWN INDICATION
     Route: 065
  18. DICLOXACILLIN [Concomitant]
     Indication: DRUG USE FOR UNKNOWN INDICATION
     Route: 065
  19. CELEBREX [Concomitant]
     Indication: DRUG USE FOR UNKNOWN INDICATION
     Route: 065
  20. CENTRUM SILVER [Concomitant]
     Indication: DRUG USE FOR UNKNOWN INDICATION
     Route: 065
  21. TERAZOSIN HCL [Concomitant]
     Indication: DRUG USE FOR UNKNOWN INDICATION
     Route: 065
  22. RESTORIL [Concomitant]
     Indication: DRUG USE FOR UNKNOWN INDICATION
     Route: 048
  23. LATANOPROST [Concomitant]
     Indication: DRUG USE FOR UNKNOWN INDICATION
     Route: 047

REACTIONS (8)
  - CARDIAC HYPERTROPHY [None]
  - CHOLECYSTITIS INFECTIVE [None]
  - COAGULOPATHY [None]
  - DRUG TOXICITY [None]
  - GLOMERULONEPHRITIS ACUTE [None]
  - INTRA-ABDOMINAL HAEMATOMA [None]
  - PNEUMONIA KLEBSIELLA [None]
  - VENTRICULAR TACHYCARDIA [None]
